FAERS Safety Report 4911165-7 (Version None)
Quarter: 2006Q1

REPORT INFORMATION
  Report Type: 
  Country: None (occurrence: None)
  Receive Date: 20060209
  Receipt Date: 20060126
  Transmission Date: 20060701
  Serious: Yes (Other)
  Sender: FDA-Public Use
  Company Number: BR-2006-001626

PATIENT
  Age: 47 Year
  Sex: Female

DRUGS (1)
  1. BETAFERON (INTERFERON BETA-1B) INJECTION, 250UG [Suspect]
     Indication: MULTIPLE SCLEROSIS
     Dosage: 8 MIU, EVERY 2D, SUBCUTANEOUS
     Route: 058
     Dates: start: 20040903

REACTIONS (6)
  - COMA [None]
  - DYSKINESIA [None]
  - DYSPNOEA [None]
  - FORMICATION [None]
  - MASTICATION DISORDER [None]
  - MULTIPLE SCLEROSIS RELAPSE [None]
